FAERS Safety Report 18843665 (Version 1)
Quarter: 2021Q1

REPORT INFORMATION
  Report Type: Report from Study
  Country: US (occurrence: US)
  Receive Date: 20210203
  Receipt Date: 20210203
  Transmission Date: 20210419
  Serious: No
  Sender: FDA-Public Use
  Company Number: US-EXELIXIS-CABO-20031567

PATIENT
  Age: 72 Year
  Sex: Male

DRUGS (1)
  1. CABOMETYX [Suspect]
     Active Substance: CABOZANTINIB S-MALATE
     Indication: MALIGNANT NEOPLASM OF RENAL PELVIS
     Dosage: 40 MG
     Dates: start: 20200707

REACTIONS (4)
  - Protein urine present [Unknown]
  - Fatigue [Unknown]
  - Off label use [Unknown]
  - Urine potassium increased [Unknown]

NARRATIVE: CASE EVENT DATE: 202007
